FAERS Safety Report 5226221-6 (Version None)
Quarter: 2007Q1

REPORT INFORMATION
  Report Type: 
  Country: None (occurrence: None)
  Receive Date: 20070129
  Receipt Date: 20070122
  Transmission Date: 20070707
  Serious: Yes (Death, Other)
  Sender: FDA-Public Use
  Company Number: 2006SP005999

PATIENT
  Age: 69 Year
  Sex: Male
  Weight: 49 kg

DRUGS (5)
  1. TEMODAL [Suspect]
     Indication: NEOPLASM RECURRENCE
     Dosage: 150 MG/M2; QD; PO
     Route: 048
     Dates: start: 20031013, end: 20061017
  2. TEMODAL [Suspect]
     Indication: OLIGODENDROGLIOMA
     Dosage: 150 MG/M2; QD; PO
     Route: 048
     Dates: start: 20031013, end: 20061017
  3. ACNU (PREV.) [Concomitant]
  4. ONCOVIN (PREV.) [Concomitant]
  5. NATULAN (PREV.) [Concomitant]

REACTIONS (7)
  - DISEASE PROGRESSION [None]
  - DISSEMINATED INTRAVASCULAR COAGULATION [None]
  - GENERAL PHYSICAL HEALTH DETERIORATION [None]
  - MELAENA [None]
  - MULTI-ORGAN FAILURE [None]
  - SHOCK [None]
  - THROMBOCYTOPENIA [None]
